FAERS Safety Report 14026926 (Version 1)
Quarter: 2017Q3

REPORT INFORMATION
  Report Type: Spontaneous
  Country: US (occurrence: US)
  Receive Date: 20170929
  Receipt Date: 20170929
  Transmission Date: 20171128
  Serious: No
  Sender: FDA-Public Use
  Company Number: US-SUNOVION-2017SUN004121

PATIENT

DRUGS (3)
  1. WELLBUTRIN [Concomitant]
     Active Substance: BUPROPION HYDROCHLORIDE
  2. LATUDA [Suspect]
     Active Substance: LURASIDONE HYDROCHLORIDE
     Dosage: UNK
     Route: 048
  3. NEUROTIN [Concomitant]
     Active Substance: GABAPENTIN

REACTIONS (4)
  - Memory impairment [Unknown]
  - Abnormal dreams [Unknown]
  - Depression [Unknown]
  - Mood swings [Unknown]
